FAERS Safety Report 14374550 (Version 1)
Quarter: 2018Q1

REPORT INFORMATION
  Report Type: Spontaneous
  Country: FR (occurrence: FR)
  Receive Date: 20180111
  Receipt Date: 20180111
  Transmission Date: 20180509
  Serious: Yes (Life-Threatening, Hospitalization, Other)
  Sender: FDA-Public Use
  Company Number: FR-ACCORD-062702

PATIENT
  Age: 53 Year
  Sex: Male

DRUGS (4)
  1. CLOZAPINE. [Suspect]
     Active Substance: CLOZAPINE
     Indication: DELUSION
     Dosage: REGIMEN 1
     Route: 048
     Dates: start: 20151230
  2. ABILIFY [Interacting]
     Active Substance: ARIPIPRAZOLE
     Indication: DELUSION
     Route: 048
  3. QUETIAPINE. [Interacting]
     Active Substance: QUETIAPINE
     Indication: DELUSION
     Route: 048
     Dates: start: 20151230, end: 20160211
  4. XEROQUEL [Interacting]
     Active Substance: QUETIAPINE FUMARATE
     Indication: DELUSION
     Dosage: 2 TAB, QD
     Route: 048
     Dates: start: 20151230, end: 20160211

REACTIONS (7)
  - Overdose [Unknown]
  - Condition aggravated [Recovered/Resolved]
  - Off label use [Unknown]
  - Acute kidney injury [Unknown]
  - Septic shock [Unknown]
  - Drug interaction [Unknown]
  - Extrapyramidal disorder [Recovered/Resolved]

NARRATIVE: CASE EVENT DATE: 20160423
